FAERS Safety Report 9286223 (Version 2)
Quarter: 2013Q3

REPORT INFORMATION
  Report Type: Report from Study
  Country: US (occurrence: US)
  Receive Date: 20130513
  Receipt Date: 20130724
  Transmission Date: 20140515
  Serious: Yes (Life-Threatening, Hospitalization, Other)
  Sender: FDA-Public Use
  Company Number: PHHY2013US047116

PATIENT
  Age: 37 Year
  Sex: Male

DRUGS (3)
  1. GILENYA [Suspect]
     Indication: MULTIPLE SCLEROSIS
     Dosage: 0.5 MG, QD
     Route: 048
     Dates: start: 20111201, end: 20121115
  2. WELLBUTRIN [Concomitant]
     Indication: DEPRESSION
     Dosage: 300 MG, QD
     Route: 048
  3. ZYPREXA [Concomitant]
     Indication: DEPRESSION
     Dosage: 10 MG, QD
     Route: 048

REACTIONS (2)
  - Acquired immunodeficiency syndrome [Unknown]
  - Leukopenia [Recovered/Resolved]
